FAERS Safety Report 7960743-X (Version None)
Quarter: 2011Q4

REPORT INFORMATION
  Report Type: 
  Country: None (occurrence: None)
  Receive Date: 20111207
  Receipt Date: 20111130
  Transmission Date: 20120403
  Serious: Yes (Hospitalization)
  Sender: FDA-Public Use
  Company Number: FR-BRISTOL-MYERS SQUIBB COMPANY-16183790

PATIENT
  Age: 78 Year
  Sex: Female

DRUGS (10)
  1. GALANTAMINE HYDROBROMIDE [Suspect]
     Indication: DEMENTIA ALZHEIMER'S TYPE
  2. ESCITALOPRAM OXALATE [Concomitant]
     Indication: ANXIETY
     Dates: start: 20110602, end: 20110701
  3. VALPROIC ACID [Suspect]
  4. MEMANTINE HYDROCHLORIDE [Suspect]
     Indication: DEMENTIA ALZHEIMER'S TYPE
  5. UVEDOSE [Suspect]
     Indication: VITAMIN D DEFICIENCY
  6. DIOSMIN [Suspect]
     Indication: SENSATION OF HEAVINESS
  7. COUMADIN [Suspect]
     Indication: THROMBOSIS PROPHYLAXIS
     Route: 048
     Dates: start: 20110602
  8. TANAKAN [Suspect]
     Indication: DEMENTIA ALZHEIMER'S TYPE
  9. CLONAZEPAM [Concomitant]
     Indication: EPILEPSY
  10. CALCIUM CARBONATE [Suspect]
     Indication: CALCIUM DEFICIENCY

REACTIONS (1)
  - HAEMOLYTIC ANAEMIA [None]
